FAERS Safety Report 6430612-5 (Version None)
Quarter: 2009Q4

REPORT INFORMATION
  Report Type: 
  Country: None (occurrence: None)
  Receive Date: 20091106
  Receipt Date: 20091030
  Transmission Date: 20100525
  Serious: Yes (Other)
  Sender: FDA-Public Use
  Company Number: A0815138A

PATIENT
  Age: 38 Year
  Sex: Female

DRUGS (3)
  1. TYKERB [Suspect]
     Dates: start: 20091028
  2. VINORELBINE [Concomitant]
  3. CISPLATIN [Concomitant]

REACTIONS (3)
  - DIARRHOEA [None]
  - NEUTROPENIA [None]
  - VOMITING [None]
